FAERS Safety Report 10526161 (Version 1)
Quarter: 2014Q4

REPORT INFORMATION
  Report Type: Spontaneous
  Country: GB (occurrence: GB)
  Receive Date: 20141017
  Receipt Date: 20141017
  Transmission Date: 20150528
  Serious: Yes (Other)
  Sender: FDA-Public Use
  Company Number: ALCN2014GB005738

PATIENT
  Age: 51 Year
  Sex: Female

DRUGS (2)
  1. MULTIVITAMIN AND MINERAL SUPPLEMENT [Concomitant]
     Active Substance: MINERALS\VITAMINS
  2. MAXIDEX [Suspect]
     Active Substance: DEXAMETHASONE
     Dosage: UNK
     Route: 047
     Dates: start: 20140822, end: 20140926

REACTIONS (2)
  - Eyelid ptosis [Unknown]
  - Pain [Unknown]
